FAERS Safety Report 20016897 (Version 1)
Quarter: 2021Q4

REPORT INFORMATION
  Report Type: Spontaneous
  Country: US (occurrence: None)
  Receive Date: 20211105
  Receipt Date: 20211105
  Transmission Date: 20220303
  Serious: Yes (Death)
  Sender: FDA-Public Use
  Company Number: None

PATIENT
  Age: 66 Year
  Sex: Female

DRUGS (1)
  1. YESCARTA [Suspect]
     Active Substance: AXICABTAGENE CILOLEUCEL
     Indication: Diffuse large B-cell lymphoma
     Dosage: OTHER FREQUENCY : ONCE;?
     Dates: start: 20210726, end: 20210726

REACTIONS (8)
  - Neurotoxicity [None]
  - Azotaemia [None]
  - Thyrotoxic crisis [None]
  - Psychotic disorder [None]
  - Vocal cord paralysis [None]
  - Renal impairment [None]
  - Coronary artery occlusion [None]
  - Cerebrovascular accident [None]

NARRATIVE: CASE EVENT DATE: 20210731
